FAERS Safety Report 17220562 (Version 1)
Quarter: 2019Q4

REPORT INFORMATION
  Report Type: Spontaneous
  Country: IT (occurrence: IT)
  Receive Date: 20191231
  Receipt Date: 20191231
  Transmission Date: 20200122
  Serious: Yes (Other)
  Sender: FDA-Public Use
  Company Number: IT-MYLANLABS-2019M1132013

PATIENT
  Age: 66 Year
  Sex: Female

DRUGS (5)
  1. OXALIPLATIN MYLAN [Suspect]
     Active Substance: OXALIPLATIN
     Indication: METASTASES TO LIVER
     Dosage: 200 MILLIGRAM, CYCLE
     Route: 042
     Dates: start: 20180809, end: 20181129
  2. TIROSINT [Concomitant]
     Active Substance: LEVOTHYROXINE SODIUM
     Dosage: UNK
  3. LUCEN                              /01479302/ [Concomitant]
     Active Substance: ESOMEPRAZOLE
     Dosage: UNK
  4. FLUOROURACIL. [Suspect]
     Active Substance: FLUOROURACIL
     Indication: METASTASES TO LIVER
     Dosage: 3500 MILLIGRAM, CYCLE
     Route: 040
     Dates: start: 20180809, end: 20181129
  5. VECTIBIX [Suspect]
     Active Substance: PANITUMUMAB
     Indication: METASTASES TO LIVER
     Dosage: 400 MILLIGRAM, CYCLE
     Route: 042
     Dates: start: 20180809, end: 20181129

REACTIONS (6)
  - Oedema [Recovering/Resolving]
  - Neuropathy peripheral [Recovering/Resolving]
  - Dry skin [Recovering/Resolving]
  - Skin fissures [Recovering/Resolving]
  - Flushing [Recovering/Resolving]
  - Eye irritation [Recovering/Resolving]

NARRATIVE: CASE EVENT DATE: 20181213
